FAERS Safety Report 11643508 (Version 3)
Quarter: 2016Q1

REPORT INFORMATION
  Report Type: Spontaneous
  Country: US (occurrence: US)
  Receive Date: 20151020
  Receipt Date: 20160114
  Transmission Date: 20160525
  Serious: Yes (Other)
  Sender: FDA-Public Use
  Company Number: US-ASTELLAS-2015US033836

PATIENT
  Sex: Male

DRUGS (1)
  1. XTANDI [Suspect]
     Active Substance: ENZALUTAMIDE
     Indication: PROSTATE CANCER
     Route: 048
     Dates: start: 20150724

REACTIONS (7)
  - Hypoaesthesia [Recovering/Resolving]
  - Prostatic specific antigen increased [Unknown]
  - Paraesthesia [Recovering/Resolving]
  - Bone cancer [Not Recovered/Not Resolved]
  - Arthralgia [Not Recovered/Not Resolved]
  - Glaucoma [Not Recovered/Not Resolved]
  - Arthritis [Not Recovered/Not Resolved]
